FAERS Safety Report 25532021 (Version 1)
Quarter: 2025Q3

REPORT INFORMATION
  Report Type: Other
  Country: CA (occurrence: CA)
  Receive Date: 20250709
  Receipt Date: 20250709
  Transmission Date: 20251021
  Serious: Yes (Other)
  Sender: APOTEX
  Company Number: CA-PGRTD-E2B_00893481

PATIENT
  Age: 28 Year
  Sex: Female

DRUGS (1)
  1. IMATINIB MESYLATE [Suspect]
     Active Substance: IMATINIB MESYLATE
     Indication: Philadelphia positive chronic myeloid leukaemia
     Route: 048

REACTIONS (3)
  - Philadelphia positive chronic myeloid leukaemia [Unknown]
  - Malignant neoplasm progression [Unknown]
  - Drug ineffective [Unknown]
